FAERS Safety Report 8558312-6 (Version None)
Quarter: 2012Q3

REPORT INFORMATION
  Report Type: 
  Country: None (occurrence: None)
  Receive Date: 20120801
  Receipt Date: 20120725
  Transmission Date: 20120928
  Serious: Yes (Other)
  Sender: FDA-Public Use
  Company Number: US-B.I. PHARMACEUTICALS,INC./RIDGEFIELD-2012-BP-14926BP

PATIENT
  Sex: Female
  Weight: 83.01 kg

DRUGS (7)
  1. PANTOPRAZOLE [Concomitant]
     Indication: GASTROOESOPHAGEAL REFLUX DISEASE
     Dosage: 40 MG
  2. PRADAXA [Suspect]
     Indication: ATRIAL FIBRILLATION
  3. SYNTHROID [Concomitant]
     Indication: HYPOTHYROIDISM
     Dosage: 50 MCG
  4. PRADAXA [Suspect]
     Indication: CEREBROVASCULAR ACCIDENT PROPHYLAXIS
     Dosage: 300 MG
     Route: 048
     Dates: start: 20120418, end: 20120514
  5. SIMVASTATIN [Concomitant]
     Indication: HYPERCHOLESTEROLAEMIA
     Dosage: 20 MG
  6. NADOLOL [Concomitant]
     Indication: ATRIAL FIBRILLATION
     Dosage: 20 MG
     Dates: start: 20120420, end: 20120514
  7. NADOLOL [Concomitant]
     Indication: HEART RATE ABNORMAL

REACTIONS (6)
  - SUICIDAL IDEATION [None]
  - DEPRESSION [None]
  - ANXIETY [None]
  - INSOMNIA [None]
  - TACHYPHRENIA [None]
  - NERVOUSNESS [None]
